FAERS Safety Report 7156850-4 (Version None)
Quarter: 2010Q4

REPORT INFORMATION
  Report Type: 
  Country: None (occurrence: None)
  Receive Date: 20101214
  Receipt Date: 20101209
  Transmission Date: 20110411
  Serious: Yes (Life-Threatening, Disabling, Other)
  Sender: FDA-Public Use
  Company Number: CN-ROXANE LABORATORIES, INC.-2010-RO-01597RO

PATIENT
  Age: 31 Year
  Sex: Male

DRUGS (15)
  1. DEXAMETHASONE [Suspect]
     Indication: ALLERGY PROPHYLAXIS
     Dosage: 25 MG
  2. DEXAMETHASONE [Suspect]
     Dosage: 5 MG
     Dates: start: 20080505
  3. DEXAMETHASONE [Suspect]
     Dosage: 10 MG
     Dates: start: 20080515
  4. PIPERACILLIN SODIUM [Suspect]
     Indication: INFECTION
  5. SULBACTUM SODIUM [Suspect]
     Indication: INFECTION
  6. IMMUNE GLOBULIN NOS [Suspect]
     Indication: FUNGAL INFECTION
     Dosage: 10 G
  7. TIENAM [Suspect]
     Indication: FUNGAL INFECTION
  8. TAZOBACTAM [Suspect]
     Indication: FUNGAL INFECTION
     Dates: start: 20080523
  9. CLINDAMYCIN [Suspect]
     Indication: FUNGAL INFECTION
  10. LAMIVUDINE [Suspect]
  11. THYMOSIN ALPHA 1 [Suspect]
  12. AMPHOTERICIN B CHOLESTRYL SULFATE COMPLEX [Suspect]
     Indication: FUNGAL INFECTION
     Dates: start: 20080524, end: 20080524
  13. AMPHOTERICIN B CHOLESTRYL SULFATE COMPLEX [Suspect]
     Dates: start: 20080524, end: 20080528
  14. ITRACONAZOLE [Suspect]
     Indication: ASPERGILLOSIS
     Dosage: 400 MG
     Route: 048
  15. MANNITOL [Suspect]
     Route: 042

REACTIONS (11)
  - BLINDNESS [None]
  - BRONCHOPULMONARY ASPERGILLOSIS [None]
  - CONJUNCTIVAL HAEMORRHAGE [None]
  - CONJUNCTIVAL OEDEMA [None]
  - FAECAL INCONTINENCE [None]
  - HEMIPLEGIA [None]
  - NAUSEA [None]
  - PERICARDIAL EFFUSION [None]
  - PERICARDITIS [None]
  - RENAL IMPAIRMENT [None]
  - URINARY INCONTINENCE [None]
